FAERS Safety Report 7344400-9 (Version None)
Quarter: 2011Q1

REPORT INFORMATION
  Report Type: 
  Country: None (occurrence: None)
  Receive Date: 20110310
  Receipt Date: 20110110
  Transmission Date: 20110831
  Serious: No
  Sender: FDA-Public Use
  Company Number: A0904364A

PATIENT
  Age: 35 Year
  Sex: Male

DRUGS (1)
  1. NICORETTE (MINT) [Suspect]
     Dates: start: 20101118, end: 20110104

REACTIONS (4)
  - LACRIMATION INCREASED [None]
  - NICOTINE DEPENDENCE [None]
  - HEADACHE [None]
  - CONSTIPATION [None]
